FAERS Safety Report 4751303-2 (Version None)
Quarter: 2005Q3

REPORT INFORMATION
  Report Type: 
  Country: None (occurrence: None)
  Receive Date: 20050824
  Receipt Date: 20050815
  Transmission Date: 20060218
  Serious: Yes (Hospitalization, Other)
  Sender: FDA-Public Use
  Company Number: US-ABBOTT-05P-163-0308397-00

PATIENT
  Age: 5 Week
  Sex: Female
  Weight: 3.8 kg

DRUGS (2)
  1. VICODIN [Suspect]
     Indication: DRUG EXPOSURE DURING PREGNANCY
     Dosage: NOT REPORTED
  2. METHADONE HCL [Suspect]
     Indication: DRUG EXPOSURE DURING PREGNANCY
     Dosage: NOT REPORTED

REACTIONS (3)
  - APNOEA [None]
  - CYANOSIS [None]
  - IRRITABILITY [None]
